FAERS Safety Report 9351583 (Version 1)
Quarter: 2013Q2

REPORT INFORMATION
  Report Type: Spontaneous
  Country: FR (occurrence: FR)
  Receive Date: 20130617
  Receipt Date: 20130617
  Transmission Date: 20140414
  Serious: Yes (Disabling)
  Sender: FDA-Public Use
  Company Number: FR-BRISTOL-MYERS SQUIBB COMPANY-18998419

PATIENT
  Age: 65 Year
  Sex: Female

DRUGS (7)
  1. TAXOL INJ [Suspect]
     Indication: BREAST CANCER
     Dates: start: 20120322, end: 20120903
  2. AVASTIN [Suspect]
     Indication: BREAST CANCER
     Dosage: AVASTIN 25 MG/ML CONCENTRATE FOR SOLUTION FOR INFUSION
     Route: 042
     Dates: start: 20110322, end: 20130111
  3. MYOCET [Suspect]
     Indication: BREAST CANCER
     Dosage: MYOCET 50MG POWDER + PRE-ADMIXTURES FOR CONCENTRATE FOR LIPOSOMAL DISPERSION FOR INFUSION
     Route: 042
     Dates: start: 20130204
  4. ENDOXAN [Suspect]
     Indication: BREAST CANCER
     Dates: start: 20130204
  5. NEBILOX [Concomitant]
  6. SEROPLEX [Concomitant]
  7. ALPRAZOLAM [Concomitant]

REACTIONS (3)
  - Pulmonary arterial hypertension [Not Recovered/Not Resolved]
  - Ejection fraction decreased [Not Recovered/Not Resolved]
  - Dyspnoea exertional [Not Recovered/Not Resolved]
